FAERS Safety Report 11301366 (Version 1)
Quarter: 2015Q3

REPORT INFORMATION
  Report Type: Spontaneous
  Country: US (occurrence: US)
  Receive Date: 20150722
  Receipt Date: 20150722
  Transmission Date: 20151125
  Serious: No
  Sender: FDA-Public Use
  Company Number: US-ELI_LILLY_AND_COMPANY-USA021224823

PATIENT
  Age: 53 Year
  Sex: Male
  Weight: 104.55 kg

DRUGS (2)
  1. DEXEDRINE [Concomitant]
     Active Substance: DEXTROAMPHETAMINE SULFATE
  2. HUMATROPE [Suspect]
     Active Substance: SOMATROPIN
     Indication: GROWTH HORMONE DEFICIENCY
     Dosage: 6 MG, DAILY (1/D)
     Route: 058
     Dates: start: 200211

REACTIONS (5)
  - Back pain [Not Recovered/Not Resolved]
  - Adverse event [Recovered/Resolved]
  - Muscle spasms [Not Recovered/Not Resolved]
  - Product preparation error [Recovered/Resolved]
  - Incorrect dose administered [Recovered/Resolved]

NARRATIVE: CASE EVENT DATE: 20021213
